FAERS Safety Report 8514894-1 (Version None)
Quarter: 2012Q3

REPORT INFORMATION
  Report Type: 
  Country: None (occurrence: None)
  Receive Date: 20120717
  Receipt Date: 20120711
  Transmission Date: 20120928
  Serious: Yes (Other)
  Sender: FDA-Public Use
  Company Number: FR-ROCHE-1064515

PATIENT
  Sex: Male
  Weight: 56 kg

DRUGS (3)
  1. VENTOLIN [Concomitant]
  2. XOLAIR [Suspect]
     Indication: ASTHMA
     Route: 058
     Dates: start: 20090901
  3. INNOVAR [Concomitant]
     Dates: start: 20080301

REACTIONS (1)
  - OSTEOCHONDROSIS [None]
